FAERS Safety Report 4634735-2 (Version None)
Quarter: 2005Q2

REPORT INFORMATION
  Report Type: 
  Country: None (occurrence: None)
  Receive Date: 20050413
  Receipt Date: 20050413
  Transmission Date: 20051028
  Serious: Yes (Other)
  Sender: FDA-Public Use
  Company Number: None

PATIENT
  Age: 63 Year
  Sex: Female
  Weight: 88.4514 kg

DRUGS (2)
  1. FENTANYL [Suspect]
     Indication: BACK PAIN
     Dosage: 75 MCG, ONE Q 72 H; PATCH
     Route: 062
     Dates: start: 20040701
  2. FENTANYL [Suspect]
     Indication: OSTEOARTHRITIS
     Dosage: 75 MCG, ONE Q 72 H; PATCH
     Route: 062
     Dates: start: 20040701

REACTIONS (5)
  - APPLICATION SITE DESQUAMATION [None]
  - DRUG EFFECT DECREASED [None]
  - PHARMACEUTICAL PRODUCT COMPLAINT [None]
  - SKIN BURNING SENSATION [None]
  - SKIN DISCOLOURATION [None]
